FAERS Safety Report 8554079-6 (Version None)
Quarter: 2012Q3

REPORT INFORMATION
  Report Type: 
  Country: None (occurrence: None)
  Receive Date: 20120731
  Receipt Date: 20120729
  Transmission Date: 20120928
  Serious: Yes (Other)
  Sender: FDA-Public Use
  Company Number: JP-BRISTOL-MYERS SQUIBB COMPANY-16697328

PATIENT
  Age: 76 Year
  Sex: Female

DRUGS (2)
  1. LIVALO [Suspect]
     Dosage: FOR A LONG TIME
     Route: 048
  2. ORENCIA [Suspect]
     Route: 041
     Dates: start: 20120424

REACTIONS (1)
  - PARKINSON'S DISEASE [None]
